FAERS Safety Report 13423963 (Version 1)
Quarter: 2017Q2

REPORT INFORMATION
  Report Type: Spontaneous
  Country: GB (occurrence: GB)
  Receive Date: 20170410
  Receipt Date: 20170410
  Transmission Date: 20170830
  Serious: Yes (Other)
  Sender: FDA-Public Use
  Company Number: GB-TEVA-755043ACC

PATIENT
  Age: 66 Year
  Sex: Female
  Weight: 60 kg

DRUGS (1)
  1. NASOFAN AQUEOUS [Suspect]
     Active Substance: FLUTICASONE PROPIONATE
     Indication: COUGH
     Route: 045
     Dates: start: 20170208, end: 20170213

REACTIONS (6)
  - Dysgeusia [Recovered/Resolved]
  - Oropharyngeal pain [Recovered/Resolved]
  - Skin odour abnormal [Recovered/Resolved]
  - Headache [Recovered/Resolved]
  - Malaise [Recovered/Resolved]
  - Epistaxis [Recovered/Resolved]

NARRATIVE: CASE EVENT DATE: 20170208
